FAERS Safety Report 4809555-6 (Version None)
Quarter: 2005Q4

REPORT INFORMATION
  Report Type: 
  Country: None (occurrence: None)
  Receive Date: 20051025
  Receipt Date: 20051019
  Transmission Date: 20060501
  Serious: Yes (Hospitalization)
  Sender: FDA-Public Use
  Company Number: AU-MERCK-0510AUS00114

PATIENT
  Age: 71 Year
  Sex: Female

DRUGS (3)
  1. FOSAMAX [Suspect]
     Indication: OSTEOPOROSIS
     Route: 048
     Dates: start: 19940101, end: 19990801
  2. FOSAMAX [Suspect]
     Route: 048
     Dates: start: 20050801
  3. ESTROPIPATE [Concomitant]
     Indication: MENOPAUSE
     Route: 065
     Dates: start: 19750101

REACTIONS (4)
  - OESOPHAGEAL DISORDER [None]
  - PANCREATITIS [None]
  - PHARYNGOLARYNGEAL PAIN [None]
  - SENSATION OF FOREIGN BODY [None]
